FAERS Safety Report 20674613 (Version 4)
Quarter: 2022Q2

REPORT INFORMATION
  Report Type: Spontaneous
  Country: JP (occurrence: JP)
  Receive Date: 20220405
  Receipt Date: 20220514
  Transmission Date: 20220720
  Serious: Yes (Death)
  Sender: FDA-Public Use
  Company Number: JP-JNJFOC-20220404143

PATIENT
  Age: 7 Decade
  Sex: Male

DRUGS (4)
  1. STELARA [Suspect]
     Active Substance: USTEKINUMAB
     Indication: Crohn^s disease
     Route: 041
     Dates: start: 20220202, end: 20220202
  2. UNSPECIFIED INGREDIENT [Concomitant]
     Active Substance: UNSPECIFIED INGREDIENT
     Indication: Prophylaxis
     Dosage: DOSE UNKNOWN
     Route: 030
  3. UNSPECIFIED INGREDIENT [Concomitant]
     Active Substance: UNSPECIFIED INGREDIENT
     Dosage: DOSE UNKNOWN
     Route: 030
  4. UNSPECIFIED INGREDIENT [Concomitant]
     Active Substance: UNSPECIFIED INGREDIENT
     Dosage: DOSE UNKNOWN
     Route: 030
     Dates: start: 20220301, end: 20220301

REACTIONS (1)
  - Shock haemorrhagic [Fatal]

NARRATIVE: CASE EVENT DATE: 20220301
